FAERS Safety Report 8174184-6 (Version None)
Quarter: 2012Q1

REPORT INFORMATION
  Report Type: 
  Country: None (occurrence: None)
  Receive Date: 20120224
  Receipt Date: 20120215
  Transmission Date: 20120608
  Serious: Yes (Hospitalization, Other)
  Sender: FDA-Public Use
  Company Number: AUR-APL-2012-01070

PATIENT
  Age: 55 Year
  Sex: Male

DRUGS (4)
  1. FINASTERIDE [Suspect]
     Indication: ALOPECIA
     Dosage: ORAL
     Route: 048
     Dates: start: 20060101, end: 20120101
  2. PROZAC [Concomitant]
  3. PROCORALAN (IVABRADINE HYDROCHLORIDE) [Concomitant]
  4. ATORVASTATIN CALCIUM [Suspect]
     Indication: HYPERCHOLESTEROLAEMIA
     Dosage: ORAL
     Route: 048
     Dates: start: 20010101, end: 20120101

REACTIONS (3)
  - ASTHENIA [None]
  - ALOPECIA [None]
  - INTERSTITIAL LUNG DISEASE [None]
